FAERS Safety Report 23257754 (Version 1)
Quarter: 2023Q4

REPORT INFORMATION
  Report Type: Report from Study
  Country: DE (occurrence: DE)
  Receive Date: 20231204
  Receipt Date: 20231204
  Transmission Date: 20240110
  Serious: Yes (Hospitalization)
  Sender: FDA-Public Use
  Company Number: DE-002147023-NVSC2022DE280833

PATIENT
  Sex: Female

DRUGS (5)
  1. CELECOXIB [Suspect]
     Active Substance: CELECOXIB
     Indication: Psoriatic arthropathy
     Dosage: 200 MG
     Route: 065
     Dates: start: 20210526, end: 20210921
  2. CELECOXIB [Suspect]
     Active Substance: CELECOXIB
     Dosage: 400 MG
     Route: 065
     Dates: start: 20210922
  3. METHOTREXATE [Suspect]
     Active Substance: METHOTREXATE
     Dosage: 10 MG
     Route: 065
     Dates: start: 20210922
  4. METHOTREXATE [Suspect]
     Active Substance: METHOTREXATE
     Indication: Psoriatic arthropathy
     Dosage: 15 MG
     Route: 065
     Dates: start: 20200513, end: 20210921
  5. UNSPECIFIED INGREDIENT [Suspect]
     Active Substance: UNSPECIFIED INGREDIENT
     Indication: Product used for unknown indication
     Dosage: UNK
     Route: 065

REACTIONS (4)
  - Somatic symptom disorder [Unknown]
  - Tendon disorder [Unknown]
  - Tinnitus [Unknown]
  - Visual impairment [Unknown]

NARRATIVE: CASE EVENT DATE: 20211018
